FAERS Safety Report 9272843 (Version 1)
Quarter: 2013Q2

REPORT INFORMATION
  Report Type: Spontaneous
  Country: US (occurrence: US)
  Receive Date: 20130506
  Receipt Date: 20130506
  Transmission Date: 20140414
  Serious: No
  Sender: FDA-Public Use
  Company Number: US-ASTRAZENECA-2012SE40538

PATIENT
  Sex: Female

DRUGS (6)
  1. PRILOSEC OTC [Suspect]
     Indication: DYSPEPSIA
     Route: 048
     Dates: start: 20120526
  2. PRILOSEC OTC [Suspect]
     Indication: DYSPEPSIA
     Route: 048
     Dates: start: 20120526
  3. PRILOSEC OTC [Suspect]
     Indication: HYPERCHLORHYDRIA
     Route: 048
     Dates: start: 20120526
  4. PRILOSEC OTC [Suspect]
     Indication: DYSPEPSIA
     Dosage: AS NEEDED
     Route: 048
  5. PRILOSEC OTC [Suspect]
     Indication: DYSPEPSIA
     Dosage: AS NEEDED
     Route: 048
  6. PRILOSEC OTC [Suspect]
     Indication: HYPERCHLORHYDRIA
     Dosage: AS NEEDED
     Route: 048

REACTIONS (4)
  - Oropharyngeal discomfort [Recovered/Resolved]
  - Abdominal discomfort [Recovered/Resolved]
  - Musculoskeletal discomfort [Recovered/Resolved]
  - Drug ineffective [Unknown]
